FAERS Safety Report 20779998 (Version 1)
Quarter: 2022Q2

REPORT INFORMATION
  Report Type: Spontaneous
  Country: US (occurrence: US)
  Receive Date: 20220503
  Receipt Date: 20220503
  Transmission Date: 20220720
  Serious: No
  Sender: FDA-Public Use
  Company Number: US-FRESENIUS KABI-FK202205054

PATIENT
  Sex: Female

DRUGS (2)
  1. OMEGAVEN [Suspect]
     Active Substance: FISH OIL
     Indication: Product used for unknown indication
     Route: 065
  2. GLUCOSE/POTASSIUM ACETATE/CALCIUM GLUCONATE/MAGNESIUM SULFATE/SODIUM C [Concomitant]
     Indication: Product used for unknown indication
     Route: 065

REACTIONS (2)
  - Diarrhoea [Not Recovered/Not Resolved]
  - Condition aggravated [Not Recovered/Not Resolved]
